FAERS Safety Report 15782777 (Version 3)
Quarter: 2019Q2

REPORT INFORMATION
  Report Type: Spontaneous
  Country: JP (occurrence: JP)
  Receive Date: 20190102
  Receipt Date: 20190620
  Transmission Date: 20190711
  Serious: Yes (Hospitalization, Other)
  Sender: FDA-Public Use
  Company Number: JP-PFIZER INC-2018532785

PATIENT
  Age: 5 Year
  Sex: Female
  Weight: 9.3 kg

DRUGS (3)
  1. GENOTROPIN GOQUICK 5.3MG [Suspect]
     Active Substance: SOMATROPIN
     Indication: DWARFISM
     Dosage: 0.35 MG, SIX TIMES WEEKLY (ON THURSDAY)
     Route: 058
     Dates: start: 20180727
  2. FUROSEMIDE. [Concomitant]
     Active Substance: FUROSEMIDE
     Dosage: 6 MG, 2X/DAY
     Route: 048
     Dates: start: 20181225, end: 20190127
  3. ALDACTONE-A [Concomitant]
     Active Substance: SPIRONOLACTONE
     Dosage: 6 MG, 2X/DAY
     Route: 048
     Dates: start: 20181225, end: 20190127

REACTIONS (1)
  - Epilepsy [Recovered/Resolved]

NARRATIVE: CASE EVENT DATE: 20181225
